FAERS Safety Report 6313496-5 (Version None)
Quarter: 2009Q3

REPORT INFORMATION
  Report Type: 
  Country: None (occurrence: None)
  Receive Date: 20090814
  Receipt Date: 20090814
  Transmission Date: 20100115
  Serious: Yes (Life-Threatening, Hospitalization)
  Sender: FDA-Public Use
  Company Number: None

PATIENT
  Sex: Female
  Weight: 61.2356 kg

DRUGS (2)
  1. HYOMAX-SR 0.375 ARIS [Suspect]
     Indication: IRRITABLE BOWEL SYNDROME
     Dosage: 2 2 PO
     Route: 048
     Dates: start: 20090504, end: 20090520
  2. HYOMAX-SR 0.375 ARIS [Suspect]
     Indication: ORTHOSTATIC HYPOTENSION
     Dosage: 2 2 PO
     Route: 048
     Dates: start: 20090504, end: 20090520

REACTIONS (10)
  - AUTONOMIC NERVOUS SYSTEM IMBALANCE [None]
  - CONDITION AGGRAVATED [None]
  - DRUG INEFFECTIVE [None]
  - HYPOGLYCAEMIA [None]
  - IRRITABLE BOWEL SYNDROME [None]
  - MALABSORPTION [None]
  - MEDICATION RESIDUE [None]
  - POSTURAL ORTHOSTATIC TACHYCARDIA SYNDROME [None]
  - PRODUCT QUALITY ISSUE [None]
  - PRODUCT SUBSTITUTION ISSUE [None]
